FAERS Safety Report 21759880 (Version 1)
Quarter: 2022Q4

REPORT INFORMATION
  Report Type: Report from Study
  Country: US (occurrence: US)
  Receive Date: 20221221
  Receipt Date: 20221221
  Transmission Date: 20230112
  Serious: No
  Sender: FDA-Public Use
  Company Number: US-ABBVIE-22K-163-4529102-00

PATIENT
  Sex: Female

DRUGS (3)
  1. RINVOQ [Suspect]
     Active Substance: UPADACITINIB
     Indication: Rheumatoid arthritis
     Dosage: FORM STRENGTH: 15 MG?LAST ADMINISTRATION 2022
     Route: 048
     Dates: start: 20220717
  2. RINVOQ [Suspect]
     Active Substance: UPADACITINIB
     Indication: Rheumatoid arthritis
     Dosage: FORM STRENGTH: 15 MG?FIRST ADMINISTRATION 2022
     Route: 048
  3. OMEPRAZOLE [Concomitant]
     Active Substance: OMEPRAZOLE
     Indication: Product used for unknown indication

REACTIONS (9)
  - Musculoskeletal stiffness [Unknown]
  - Pain [Unknown]
  - Oropharyngeal pain [Unknown]
  - Osteoporosis [Unknown]
  - Back pain [Unknown]
  - Constipation [Unknown]
  - Arthralgia [Unknown]
  - Abdominal pain upper [Unknown]
  - Dyspepsia [Unknown]
